FAERS Safety Report 9172632 (Version 1)
Quarter: 2013Q1

REPORT INFORMATION
  Report Type: Spontaneous
  Country: US (occurrence: US)
  Receive Date: 20130318
  Receipt Date: 20130318
  Transmission Date: 20140127
  Serious: Yes (Other)
  Sender: FDA-Public Use
  Company Number: US-RB-050994-13

PATIENT
  Age: 72 Year
  Sex: Female

DRUGS (1)
  1. MUCINEX FAST MAX ADULT DM [Suspect]
     Indication: PRODUCT USED FOR UNKNOWN INDICATION
     Dosage: 20 ML THREE TIMES DAILY
     Route: 048
     Dates: start: 20130225

REACTIONS (2)
  - Blood glucose increased [Recovered/Resolved]
  - Diarrhoea [Unknown]
